FAERS Safety Report 25890095 (Version 1)
Quarter: 2025Q4

REPORT INFORMATION
  Report Type: Spontaneous
  Country: EU (occurrence: EU)
  Receive Date: 20251007
  Receipt Date: 20251007
  Transmission Date: 20260117
  Serious: Yes (Other)
  Sender: RANBAXY
  Company Number: EU-SUN PHARMACEUTICAL INDUSTRIES INC-2025RR-529980

PATIENT
  Age: 40 Year
  Sex: Female

DRUGS (3)
  1. GANIRELIX [Suspect]
     Active Substance: GANIRELIX
     Indication: Premature ovulation
     Dosage: 0.25 MILLIGRAM, DAILY
     Route: 065
  2. METHIMAZOLE [Suspect]
     Active Substance: METHIMAZOLE
     Indication: Graves^ disease
     Dosage: 20 MILLIGRAM, DAILY
     Route: 065
  3. METHIMAZOLE [Suspect]
     Active Substance: METHIMAZOLE
     Dosage: 7.5 MILLIGRAM, DAILY
     Route: 065

REACTIONS (2)
  - Graves^ disease [Unknown]
  - Therapeutic product effect incomplete [Unknown]
